FAERS Safety Report 4770588-X (Version None)
Quarter: 2005Q3

REPORT INFORMATION
  Report Type: 
  Country: None (occurrence: None)
  Receive Date: 20050914
  Receipt Date: 20050826
  Transmission Date: 20060218
  Serious: Yes (Hospitalization)
  Sender: FDA-Public Use
  Company Number: 6016923

PATIENT
  Age: 68 Year
  Sex: Male

DRUGS (15)
  1. LEVOTHYROXINE SODIUM [Suspect]
     Indication: HYPOTHYROIDISM
     Dosage: ORAL
     Route: 048
     Dates: start: 19970101
  2. FUROSEMIDE [Suspect]
     Indication: RENAL FAILURE ACUTE
     Dosage: ORAL
     Route: 048
     Dates: start: 20050624
  3. LOVENOX [Suspect]
     Indication: ATRIAL FIBRILLATION
     Dosage: 1,2 MILLIGRAM/MILLILITERS (0,6 MILLIGRAM/MILLILITERS, 2 IN 1 D) SUBCUTANEOUS
     Route: 058
     Dates: start: 20041101, end: 20050626
  4. ZYVOXID (TABLET) (LINEZOLID) [Suspect]
     Indication: STAPHYLOCOCCAL INFECTION
     Dosage: 1200 MG (600 MG, 2 IN 1 D) ORAL
     Route: 048
     Dates: start: 20050624, end: 20050803
  5. PREVISCAN (20 MG, TABLET) (FLUINDIONE) [Suspect]
     Dosage: 20 MG (20 MG, 1 IN 1 D) ORAL
     Route: 048
     Dates: start: 20050718
  6. TAREG (TABLET) (VALSARTAN) [Suspect]
     Indication: HYPERTENSION
     Dosage: ORAL
     Route: 048
     Dates: end: 20050624
  7. ALDACTONE [Suspect]
     Indication: HYPERTENSION
     Dosage: ORAL
     Route: 048
     Dates: end: 20050624
  8. VANCOCINE (TABLET) (VANCOMYCIN HYDROCHLORIDE) [Suspect]
     Indication: STAPHYLOCOCCAL INFECTION
     Dosage: ORAL
     Route: 048
     Dates: end: 20050624
  9. SPECIAFOLDINE (5 MG, TABLET) (FOLIC ACID) [Concomitant]
  10. TARDYFERON (TABLET) (FERROUS SULFATE) [Concomitant]
  11. SOTALOL HCL [Concomitant]
  12. SMECTA (SMECTITE) [Concomitant]
  13. LEXOMIL (BROMAZEPAM) [Concomitant]
  14. FERROUS FUMARATE [Concomitant]
  15. POTASSIUM CHLORIDE [Concomitant]

REACTIONS (8)
  - ANAEMIA POSTOPERATIVE [None]
  - ARTHRODESIS [None]
  - DEHYDRATION [None]
  - INFLAMMATION [None]
  - LABORATORY TEST ABNORMAL [None]
  - POSTOPERATIVE INFECTION [None]
  - RENAL FAILURE ACUTE [None]
  - STAPHYLOCOCCAL INFECTION [None]
